FAERS Safety Report 20317711 (Version 1)
Quarter: 2022Q1

REPORT INFORMATION
  Report Type: Report from Study
  Country: TR (occurrence: TR)
  Receive Date: 20220110
  Receipt Date: 20220110
  Transmission Date: 20220423
  Serious: Yes (Life-Threatening, Hospitalization, Other)
  Sender: FDA-Public Use
  Company Number: TR-PFIZER INC-202101783106

PATIENT
  Age: 8 Year
  Sex: Female
  Weight: 45 kg

DRUGS (3)
  1. VANCOMYCIN [Suspect]
     Active Substance: VANCOMYCIN
     Indication: Encephalopathy
     Dosage: 450 MG, 2X/DAY
     Route: 042
     Dates: start: 20200517, end: 20200523
  2. KLOVIREKS L [ACICLOVIR] [Concomitant]
     Dosage: 250 MG
  3. CEFTRIAXONE SODIUM [Concomitant]
     Active Substance: CEFTRIAXONE SODIUM
     Dosage: 500 MG

REACTIONS (1)
  - Acute kidney injury [Recovered/Resolved]

NARRATIVE: CASE EVENT DATE: 20200522
